FAERS Safety Report 6310591-1 (Version None)
Quarter: 2009Q3

REPORT INFORMATION
  Report Type: 
  Country: None (occurrence: None)
  Receive Date: 20090814
  Receipt Date: 20090714
  Transmission Date: 20100115
  Serious: No
  Sender: FDA-Public Use
  Company Number: US-BRISTOL-MYERS SQUIBB COMPANY-14649420

PATIENT
  Age: 36 Year
  Sex: Female
  Weight: 73 kg

DRUGS (14)
  1. IXEMPRA KIT [Suspect]
     Indication: BREAST CANCER
     Dosage: STARTED ON 13-MAY-2009. INFUSED OVER 1 HR RATHER THAN 3 HRS.
     Route: 042
     Dates: start: 20090603, end: 20090603
  2. FLAXSEED OIL [Concomitant]
  3. MELATONIN [Concomitant]
  4. NEUPOGEN [Concomitant]
  5. ALOXI [Concomitant]
     Indication: PREMEDICATION
     Route: 042
  6. BENADRYL [Concomitant]
     Indication: PREMEDICATION
     Route: 042
  7. ZANTAC [Concomitant]
     Indication: PREMEDICATION
     Route: 042
  8. ATIVAN [Concomitant]
     Indication: PREMEDICATION
     Route: 042
  9. DIFLUCAN [Concomitant]
     Route: 048
  10. LEVAQUIN [Concomitant]
     Route: 048
  11. REGLAN [Concomitant]
     Route: 048
  12. ROCEPHIN [Concomitant]
     Route: 042
  13. VICODIN [Concomitant]
     Route: 048
  14. PHENERGAN [Concomitant]
     Indication: NAUSEA
     Dosage: PHENERGAN GEL

REACTIONS (2)
  - INCORRECT DRUG ADMINISTRATION RATE [None]
  - NO ADVERSE EVENT [None]
